FAERS Safety Report 15401024 (Version 2)
Quarter: 2018Q3

REPORT INFORMATION
  Report Type: Spontaneous
  Country: DE (occurrence: DE)
  Receive Date: 20180919
  Receipt Date: 20180919
  Transmission Date: 20181010
  Serious: Yes (Other)
  Sender: FDA-Public Use
  Company Number: DE-JNJFOC-20180915351

PATIENT
  Sex: Male
  Weight: 92 kg

DRUGS (6)
  1. XARELTO [Suspect]
     Active Substance: RIVAROXABAN
     Indication: ATRIAL FIBRILLATION
     Route: 048
     Dates: start: 20180401, end: 20180904
  2. CARVEDILOL. [Concomitant]
     Active Substance: CARVEDILOL
     Dosage: SINCE YEARS
     Route: 065
  3. CORVATON [Concomitant]
     Active Substance: MOLSIDOMINE
     Dosage: SINCE YEARS
     Route: 065
  4. TELMISARTAN. [Concomitant]
     Active Substance: TELMISARTAN
     Dosage: SINCE YEARS
     Route: 065
  5. TORASEMID [Concomitant]
     Active Substance: TORSEMIDE
     Dosage: SINCE YEARS
     Route: 065
  6. CARVEDILOL. [Concomitant]
     Active Substance: CARVEDILOL
     Route: 065

REACTIONS (1)
  - Skin necrosis [Unknown]
